FAERS Safety Report 25927065 (Version 1)
Quarter: 2025Q4

REPORT INFORMATION
  Report Type: Spontaneous
  Country: US (occurrence: US)
  Receive Date: 20251015
  Receipt Date: 20251015
  Transmission Date: 20260117
  Serious: Yes (Hospitalization)
  Sender: CSL BEHRING
  Company Number: US-BEH-2025221755

PATIENT
  Age: 63 Year
  Sex: Male

DRUGS (1)
  1. VELTASSA [Suspect]
     Active Substance: PATIROMER
     Indication: Hyperkalaemia
     Dosage: 8.4 G, QD
     Route: 048

REACTIONS (3)
  - Renal disorder [Unknown]
  - Pericardial effusion [Unknown]
  - Pleural effusion [Unknown]

NARRATIVE: CASE EVENT DATE: 20251006
